FAERS Safety Report 8590788 (Version 6)
Quarter: 2014Q1

REPORT INFORMATION
  Report Type: Report from Study
  Country: BR (occurrence: BR)
  Receive Date: 20120601
  Receipt Date: 20140128
  Transmission Date: 20141002
  Serious: Yes (Other)
  Sender: FDA-Public Use
  Company Number: BR-ROCHE-1071852

PATIENT
  Age: 59 Year
  Sex: Female
  Weight: 92 kg

DRUGS (7)
  1. TOCILIZUMAB [Suspect]
     Indication: RHEUMATOID ARTHRITIS
     Route: 042
     Dates: start: 20101207, end: 20120201
  2. MABTHERA [Suspect]
     Indication: RHEUMATOID ARTHRITIS
     Dosage: LAST INFUSION RECEIVED ON 01/MAR/2013
     Route: 042
     Dates: start: 201210
  3. DEFLAN [Concomitant]
  4. CALTREN [Concomitant]
     Indication: BLOOD PRESSURE
  5. ATENOLOL [Concomitant]
     Indication: BLOOD PRESSURE
  6. DIOVAN [Concomitant]
     Indication: BLOOD PRESSURE
  7. LIPLESS [Concomitant]
     Indication: BLOOD TRIGLYCERIDES

REACTIONS (6)
  - Varicose ulceration [Recovered/Resolved]
  - Laryngeal oedema [Recovered/Resolved]
  - Weight increased [Recovering/Resolving]
  - Cardiovascular disorder [Unknown]
  - Hypersensitivity [Unknown]
  - Insomnia [Unknown]
